FAERS Safety Report 9270454 (Version 1)
Quarter: 2013Q2

REPORT INFORMATION
  Report Type: Spontaneous
  Country: US (occurrence: US)
  Receive Date: 20130503
  Receipt Date: 20130503
  Transmission Date: 20140414
  Serious: Yes (Hospitalization, Other)
  Sender: FDA-Public Use
  Company Number: US-B.I. PHARMACEUTICALS,INC./RIDGEFIELD-2013-BI-12365BP

PATIENT
  Age: 53 Year
  Sex: Male
  Weight: 91 kg

DRUGS (4)
  1. AGGRENOX [Suspect]
     Indication: CEREBROVASCULAR ACCIDENT PROPHYLAXIS
     Route: 048
     Dates: start: 201301, end: 20130415
  2. METOPROLOL [Concomitant]
     Route: 048
  3. SIMVASTATIN [Concomitant]
     Indication: BLOOD CHOLESTEROL INCREASED
     Dosage: 20 MG
     Route: 048
  4. METFORMIN [Concomitant]
     Indication: DIABETES MELLITUS
     Route: 048

REACTIONS (5)
  - Acute myocardial infarction [Recovered/Resolved with Sequelae]
  - Hyponatraemia [Recovered/Resolved]
  - Ischaemic cardiomyopathy [Not Recovered/Not Resolved]
  - Cardiogenic shock [Recovered/Resolved]
  - Cardiac failure congestive [Not Recovered/Not Resolved]
